FAERS Safety Report 15984863 (Version 2)
Quarter: 2019Q1

REPORT INFORMATION
  Report Type: Spontaneous
  Country: US (occurrence: US)
  Receive Date: 20190220
  Receipt Date: 20190221
  Transmission Date: 20190418
  Serious: Yes (Other)
  Sender: FDA-Public Use
  Company Number: US-PFIZER INC-2019068698

PATIENT
  Age: 48 Year
  Sex: Female
  Weight: 62 kg

DRUGS (1)
  1. LYRICA [Suspect]
     Active Substance: PREGABALIN
     Indication: FIBROMYALGIA
     Dosage: 200 MG, 1X/DAY
     Route: 048

REACTIONS (9)
  - Suicidal ideation [Unknown]
  - Product use issue [Unknown]
  - Drug effect incomplete [Unknown]
  - Pruritus [Unknown]
  - Hyperhidrosis [Unknown]
  - Insomnia [Unknown]
  - Withdrawal syndrome [Unknown]
  - Malaise [Unknown]
  - Drug dependence [Unknown]
